FAERS Safety Report 6136376-7 (Version None)
Quarter: 2009Q1

REPORT INFORMATION
  Report Type: 
  Country: None (occurrence: None)
  Receive Date: 20090330
  Receipt Date: 20090316
  Transmission Date: 20090719
  Serious: No
  Sender: FDA-Public Use
  Company Number: BR-ROCHE-621986

PATIENT
  Sex: Female

DRUGS (2)
  1. ROACUTAN [Suspect]
     Indication: ACNE
     Route: 048
     Dates: start: 20080101, end: 20080101
  2. ROACUTAN [Suspect]
     Route: 048
     Dates: start: 20090101, end: 20090201

REACTIONS (2)
  - NO ADVERSE EVENT [None]
  - PREGNANCY [None]
